FAERS Safety Report 20017193 (Version 1)
Quarter: 2021Q4

REPORT INFORMATION
  Report Type: Spontaneous
  Country: DE (occurrence: DE)
  Receive Date: 20211030
  Receipt Date: 20211030
  Transmission Date: 20220303
  Serious: Yes (Death, Hospitalization)
  Sender: FDA-Public Use
  Company Number: DE-PFIZER INC-2021033787

PATIENT
  Age: 73 Year
  Sex: Female

DRUGS (6)
  1. FULVESTRANT [Suspect]
     Active Substance: FULVESTRANT
     Indication: Breast cancer
     Dosage: DAY 1 OF 28-DAY CYCLE
     Dates: start: 20201203, end: 20201216
  2. PALBOCICLIB [Suspect]
     Active Substance: PALBOCICLIB
     Indication: Breast cancer
     Dosage: FROM DAY 1 TO DAY 21 EVERY 28-DAY CYCLE, CYCLICAL
     Route: 048
     Dates: start: 20201217, end: 20201223
  3. PALBOCICLIB [Suspect]
     Active Substance: PALBOCICLIB
     Dosage: FROM DAY 1 TO DAY 21 EVERY 28-DAY CYCLE, CLYCLICAL
     Route: 048
     Dates: start: 20201203, end: 20201216
  4. PANTOPRAZOLE [Concomitant]
     Active Substance: PANTOPRAZOLE
     Indication: Prophylaxis
     Route: 048
     Dates: start: 20201203
  5. IBUPROFEN [Concomitant]
     Active Substance: IBUPROFEN
     Indication: Prophylaxis
     Route: 048
     Dates: start: 202010
  6. TRAMADOL [Concomitant]
     Active Substance: TRAMADOL
     Indication: Prophylaxis
     Route: 048
     Dates: start: 202010

REACTIONS (1)
  - General physical health deterioration [Fatal]

NARRATIVE: CASE EVENT DATE: 20201214
